FAERS Safety Report 7157944-X (Version None)
Quarter: 2010Q4

REPORT INFORMATION
  Report Type: 
  Country: None (occurrence: None)
  Receive Date: 20101214
  Receipt Date: 20101130
  Transmission Date: 20110411
  Serious: Yes (Hospitalization)
  Sender: FDA-Public Use
  Company Number: US-JNJFOC-20101202724

PATIENT
  Age: 25 Year
  Sex: Male

DRUGS (9)
  1. INFLIXIMAB, RECOMBINANT [Suspect]
     Indication: CHRONIC GRANULOMATOUS DISEASE
     Route: 042
  2. INFLIXIMAB, RECOMBINANT [Suspect]
     Dosage: REACTION OCCURRED AFTER 5TH INFUSION
     Route: 042
  3. MERCAPTOPURINE [Concomitant]
     Indication: CHRONIC GRANULOMATOUS DISEASE
  4. PREDNISONE [Concomitant]
     Indication: CHRONIC GRANULOMATOUS DISEASE
  5. ASPIRIN [Concomitant]
     Indication: CHRONIC GRANULOMATOUS DISEASE
  6. TRIMETHOPRIM + SULFAMETHOXAZOLE [Concomitant]
     Indication: INFECTION PROPHYLAXIS
  7. METRONIDAZOLE [Concomitant]
     Indication: INFECTION PROPHYLAXIS
  8. CIPROFLOXACIN [Concomitant]
     Indication: INFECTION PROPHYLAXIS
  9. POSACONAZOLE [Concomitant]
     Indication: INFECTION PROPHYLAXIS

REACTIONS (3)
  - CANDIDIASIS [None]
  - LYMPHADENITIS [None]
  - SUBCUTANEOUS ABSCESS [None]
